FAERS Safety Report 9637702 (Version 2)
Quarter: 2013Q4

REPORT INFORMATION
  Report Type: Spontaneous
  Country: US (occurrence: US)
  Receive Date: 20131022
  Receipt Date: 20131210
  Transmission Date: 20140711
  Serious: No
  Sender: FDA-Public Use
  Company Number: US-TEVA-439386USA

PATIENT
  Age: 22 Year
  Sex: Female

DRUGS (3)
  1. CLARAVIS [Suspect]
     Route: 048
     Dates: start: 20130420, end: 20130812
  2. VYVANCE [Concomitant]
     Indication: ATTENTION DEFICIT/HYPERACTIVITY DISORDER
  3. LEXAPRO [Concomitant]
     Indication: ANXIETY

REACTIONS (1)
  - Liver function test abnormal [Recovered/Resolved]
